FAERS Safety Report 7739226-8 (Version None)
Quarter: 2011Q3

REPORT INFORMATION
  Report Type: 
  Country: None (occurrence: None)
  Receive Date: 20110909
  Receipt Date: 20110906
  Transmission Date: 20111222
  Serious: No
  Sender: FDA-Public Use
  Company Number: US-PFIZER INC-2011209359

PATIENT
  Sex: Female

DRUGS (2)
  1. ADVIL COLD AND SINUS [Suspect]
     Indication: NASOPHARYNGITIS
     Dosage: 200MG/30MG TWO TABLETS TWO TIMES A DAY
     Route: 048
     Dates: start: 20110101
  2. ADVIL COLD AND SINUS [Suspect]
     Indication: SINUS DISORDER

REACTIONS (1)
  - DRUG INEFFECTIVE [None]
